FAERS Safety Report 18448310 (Version 1)
Quarter: 2020Q4

REPORT INFORMATION
  Report Type: Spontaneous
  Country: US (occurrence: US)
  Receive Date: 20201031
  Receipt Date: 20201031
  Transmission Date: 20210114
  Serious: Yes (Life-Threatening, Hospitalization, Other)
  Sender: FDA-Public Use
  Company Number: US-MACLEODS PHARMACEUTICALS US LTD-MAC2020028840

PATIENT

DRUGS (4)
  1. VALPROIC ACID. [Suspect]
     Active Substance: VALPROIC ACID
     Indication: MANIA
     Dosage: 500 MILLIGRAM, BID
     Route: 065
  2. QUETIAPINE 400 MG [Suspect]
     Active Substance: QUETIAPINE
     Indication: PSYCHOTIC DISORDER
     Dosage: 400 MILLIGRAM, QD
     Route: 065
  3. VALPROIC ACID. [Suspect]
     Active Substance: VALPROIC ACID
     Indication: PSYCHOTIC DISORDER
     Dosage: 500 MILLIGRAM, TID
     Route: 065
  4. QUETIAPINE 400 MG [Suspect]
     Active Substance: QUETIAPINE
     Indication: MANIA

REACTIONS (2)
  - Hyperammonaemic encephalopathy [Recovering/Resolving]
  - Toxicity to various agents [Recovering/Resolving]
